FAERS Safety Report 17170482 (Version 1)
Quarter: 2019Q4

REPORT INFORMATION
  Report Type: Spontaneous
  Country: US (occurrence: US)
  Receive Date: 20191218
  Receipt Date: 20191218
  Transmission Date: 20200122
  Serious: Yes (Other)
  Sender: FDA-Public Use
  Company Number: US-BAYER-2019-228193

PATIENT
  Age: 70 Year

DRUGS (2)
  1. GADAVIST [Suspect]
     Active Substance: GADOBUTROL
     Indication: SCAN WITH CONTRAST
  2. GADAVIST [Suspect]
     Active Substance: GADOBUTROL
     Indication: MAGNETIC RESONANCE IMAGING
     Dosage: 604.72 MG/ML, ONCE
     Dates: start: 20191210, end: 20191210

REACTIONS (3)
  - Pallor [None]
  - Nausea [None]
  - Unresponsive to stimuli [None]

NARRATIVE: CASE EVENT DATE: 20191210
